FAERS Safety Report 13186788 (Version 1)
Quarter: 2017Q1

REPORT INFORMATION
  Report Type: Spontaneous
  Country: US (occurrence: US)
  Receive Date: 20170205
  Receipt Date: 20170205
  Transmission Date: 20170428
  Serious: Yes (Other)
  Sender: FDA-Public Use
  Company Number: US-AMGEN-USASP2017017871

PATIENT
  Age: 49 Year
  Sex: Female

DRUGS (7)
  1. ENBREL [Suspect]
     Active Substance: ETANERCEPT
     Indication: PSORIASIS
     Dosage: 50 MG, QWK
     Route: 058
     Dates: start: 2013
  2. RISPERIDONE. [Concomitant]
     Active Substance: RISPERIDONE
  3. MODAFINIL. [Concomitant]
     Active Substance: MODAFINIL
  4. MELOXICAM. [Concomitant]
     Active Substance: MELOXICAM
  5. ALPRAZOLAM. [Concomitant]
     Active Substance: ALPRAZOLAM
  6. PROTONIX [Concomitant]
     Active Substance: PANTOPRAZOLE SODIUM
  7. PAROXETINE. [Concomitant]
     Active Substance: PAROXETINE

REACTIONS (4)
  - Staphylococcal infection [Unknown]
  - Arthralgia [Unknown]
  - Pain in extremity [Unknown]
  - Blister [Unknown]

NARRATIVE: CASE EVENT DATE: 201701
